FAERS Safety Report 4488156-6 (Version None)
Quarter: 2004Q4

REPORT INFORMATION
  Report Type: 
  Country: None (occurrence: None)
  Receive Date: 20041028
  Receipt Date: 20041020
  Transmission Date: 20050328
  Serious: Yes (Other)
  Sender: FDA-Public Use
  Company Number: PHBS2004FR14173

PATIENT
  Age: 65 Year
  Sex: Male

DRUGS (3)
  1. CYCLOSPORINE [Suspect]
     Indication: LIVER TRANSPLANT
     Dosage: 150 MG/DAY
  2. INTERFERON [Concomitant]
     Indication: HEPATITIS C VIRUS
     Dosage: 80 MG, QW
  3. RIBAVIRIN [Concomitant]
     Indication: HEPATITIS C
     Dosage: 1 G/DAY

REACTIONS (6)
  - ANAEMIA HAEMOLYTIC AUTOIMMUNE [None]
  - COLD AGGLUTININS POSITIVE [None]
  - HEPATIC CIRRHOSIS [None]
  - HEPATITIS C [None]
  - LEUKAEMIC LYMPHOMA [None]
  - LYMPHOCYTOSIS [None]
